FAERS Safety Report 7646107-7 (Version None)
Quarter: 2011Q3

REPORT INFORMATION
  Report Type: 
  Country: None (occurrence: None)
  Receive Date: 20110801
  Receipt Date: 20110722
  Transmission Date: 20111222
  Serious: No
  Sender: FDA-Public Use
  Company Number: US-BIOGENIDEC-2010BI040149

PATIENT
  Sex: Female

DRUGS (2)
  1. MS MEDICATION (NOS) [Concomitant]
     Indication: MULTIPLE SCLEROSIS
  2. TYSABRI [Suspect]
     Indication: MULTIPLE SCLEROSIS
     Route: 042
     Dates: start: 20100721

REACTIONS (5)
  - FRUSTRATION [None]
  - TEMPERATURE INTOLERANCE [None]
  - DRUG INEFFECTIVE [None]
  - GAIT DISTURBANCE [None]
  - BALANCE DISORDER [None]
